FAERS Safety Report 9785238 (Version 1)
Quarter: 2013Q4

REPORT INFORMATION
  Report Type: Spontaneous
  Country: US (occurrence: None)
  Receive Date: 20131224
  Receipt Date: 20131224
  Transmission Date: 20140711
  Serious: Yes (Hospitalization, Other)
  Sender: FDA-Public Use
  Company Number: 2010S1000475

PATIENT
  Age: 75 Year
  Sex: Female
  Weight: 66.45 kg

DRUGS (9)
  1. FLEET PHOSPHO-SODA [Suspect]
     Indication: COLONOSCOPY
     Route: 048
     Dates: start: 20050815, end: 20050815
  2. XALATAN (LATANO PROST) [Concomitant]
  3. TIMOPTIC (TIMOLOL MALEATE) [Concomitant]
  4. HYDROCHLOROTHIAZIDE (HYDROCHLOROTHIAZIDE) [Concomitant]
  5. CAPOTEN (CAPTOPRIL) [Concomitant]
  6. PARAFON FORTE DSC (CHLORZOXAZONE) [Concomitant]
  7. NAPROSYN (NAPROXEN) [Concomitant]
  8. CALCIUM (CALCIUM) [Concomitant]
  9. ACTONEL (RISENDRONATE SODIUM) [Concomitant]

REACTIONS (16)
  - Blood urea increased [None]
  - Urinary tract infection [None]
  - Dehydration [None]
  - Hypokalaemia [None]
  - Hyponatraemia [None]
  - Amylase increased [None]
  - Lipase increased [None]
  - Cholelithiasis [None]
  - Gallbladder disorder [None]
  - Renal atrophy [None]
  - Renal failure chronic [None]
  - Aortic aneurysm [None]
  - Condition aggravated [None]
  - Nephrosclerosis [None]
  - Haemodialysis [None]
  - Contraindication to medical treatment [None]
